FAERS Safety Report 6788556-5 (Version None)
Quarter: 2010Q2

REPORT INFORMATION
  Report Type: 
  Country: None (occurrence: None)
  Receive Date: 20100623
  Receipt Date: 20080402
  Transmission Date: 20101027
  Serious: No
  Sender: FDA-Public Use
  Company Number: US-PFIZER INC-2008030142

PATIENT
  Sex: Male

DRUGS (1)
  1. XALATAN [Suspect]
     Indication: PIGMENTARY GLAUCOMA
     Route: 047
     Dates: start: 20080101

REACTIONS (3)
  - ALCOHOL INTERACTION [None]
  - EYE IRRITATION [None]
  - OCULAR HYPERAEMIA [None]
